FAERS Safety Report 24929425 (Version 2)
Quarter: 2025Q1

REPORT INFORMATION
  Report Type: Spontaneous
  Country: US (occurrence: US)
  Receive Date: 20250205
  Receipt Date: 20250207
  Transmission Date: 20250409
  Serious: Yes (Life-Threatening, Other)
  Sender: SANDOZ
  Company Number: US-SANDOZ-SDZ2025US007114

PATIENT
  Age: 57 Year
  Sex: Male

DRUGS (1)
  1. CISATRACURIUM [Suspect]
     Active Substance: CISATRACURIUM
     Indication: Product used for unknown indication
     Route: 040

REACTIONS (1)
  - Hyperthermia malignant [Recovering/Resolving]
